FAERS Safety Report 8258846-8 (Version None)
Quarter: 2012Q2

REPORT INFORMATION
  Report Type: 
  Country: None (occurrence: None)
  Receive Date: 20120404
  Receipt Date: 20120330
  Transmission Date: 20120825
  Serious: Yes (Death, Other)
  Sender: FDA-Public Use
  Company Number: IN-CUBIST-2012S1000322

PATIENT
  Age: 11 Year
  Sex: Female

DRUGS (1)
  1. CUBICIN [Suspect]
     Indication: ACUTE MYELOID LEUKAEMIA
     Route: 042
     Dates: start: 20120928

REACTIONS (6)
  - CARDIAC DISORDER [None]
  - ENCEPHALOPATHY [None]
  - PNEUMONIA FUNGAL [None]
  - CELLULITIS [None]
  - PULMONARY HAEMORRHAGE [None]
  - NEUTROPENIA [None]
